FAERS Safety Report 15021901 (Version 1)
Quarter: 2018Q2

REPORT INFORMATION
  Report Type: Spontaneous
  Country: US (occurrence: US)
  Receive Date: 20180618
  Receipt Date: 20180618
  Transmission Date: 20180711
  Serious: No
  Sender: FDA-Public Use
  Company Number: US-SA-2018SA119902

PATIENT
  Sex: Male
  Weight: 92 kg

DRUGS (5)
  1. RESTASIS [Concomitant]
     Active Substance: CYCLOSPORINE
     Dosage: 0.05 %
  2. PRALUENT [Suspect]
     Active Substance: ALIROCUMAB
     Indication: TYPE V HYPERLIPIDAEMIA
     Dosage: UNK UNK,UNK
     Route: 058
  3. ASA [Concomitant]
     Active Substance: ASPIRIN
     Dosage: 81 MG
  4. VITAMIN D3 [Concomitant]
     Active Substance: CHOLECALCIFEROL
     Dosage: 1000 U
  5. PRALUENT [Suspect]
     Active Substance: ALIROCUMAB
     Dosage: 1 ML,UNK
     Route: 058

REACTIONS (2)
  - Off label use [Unknown]
  - Headache [Unknown]
